FAERS Safety Report 8817703 (Version 1)
Quarter: 2012Q4

REPORT INFORMATION
  Report Type: 
  Country: US (occurrence: US)
  Receive Date: 20121001
  Receipt Date: 20121001
  Transmission Date: 20130627
  Serious: Yes (Other)
  Sender: FDA-Public Use
  Company Number: US-PFIZER INC-2012240397

PATIENT
  Age: 46 Year
  Sex: Female

DRUGS (2)
  1. MS CONTIN [Suspect]
     Dosage: UNK
     Route: 065
  2. BUTRANS [Suspect]
     Indication: DRUG ABUSE
     Dosage: 10 mcg/hr, UNK
     Route: 042

REACTIONS (2)
  - Drug abuse [Unknown]
  - Drug withdrawal syndrome [Unknown]
